FAERS Safety Report 5878406-3 (Version None)
Quarter: 2008Q3

REPORT INFORMATION
  Report Type: 
  Country: None (occurrence: None)
  Receive Date: 20080911
  Receipt Date: 20080401
  Transmission Date: 20090109
  Serious: Yes (Other)
  Sender: FDA-Public Use
  Company Number: JP-PFIZER INC-2008074864

PATIENT
  Age: 58 Year
  Sex: Female

DRUGS (1)
  1. MIGLITOL TABLET [Suspect]
     Route: 048
     Dates: start: 20071208, end: 20080315

REACTIONS (1)
  - HEPATIC FUNCTION ABNORMAL [None]
